FAERS Safety Report 17045360 (Version 1)
Quarter: 2019Q4

REPORT INFORMATION
  Report Type: Spontaneous
  Country: PT (occurrence: PT)
  Receive Date: 20191118
  Receipt Date: 20191118
  Transmission Date: 20200122
  Serious: Yes (Other)
  Sender: FDA-Public Use
  Company Number: PT-BAUSCH-BL-2019-060929

PATIENT
  Age: 61 Year
  Sex: Female

DRUGS (1)
  1. PREDNISOLONE. [Suspect]
     Active Substance: PREDNISOLONE
     Indication: IMMUNOSUPPRESSION
     Route: 065

REACTIONS (4)
  - Bronchopulmonary aspergillosis [Unknown]
  - Septic shock [Unknown]
  - Pneumonia klebsiella [Unknown]
  - Pancytopenia [Unknown]
